FAERS Safety Report 12465895 (Version 2)
Quarter: 2016Q2

REPORT INFORMATION
  Report Type: Spontaneous
  Country: CZ (occurrence: CZ)
  Receive Date: 20160614
  Receipt Date: 20160630
  Transmission Date: 20160815
  Serious: Yes (Other)
  Sender: FDA-Public Use
  Company Number: CZ-JNJFOC-20160604544

PATIENT
  Sex: Male

DRUGS (1)
  1. USTEKINUMAB [Suspect]
     Active Substance: USTEKINUMAB
     Indication: PSORIASIS
     Route: 058
     Dates: start: 20140522

REACTIONS (5)
  - Bile duct stone [Unknown]
  - C-reactive protein increased [Recovered/Resolved]
  - Klebsiella infection [Unknown]
  - Nephrolithiasis [Unknown]
  - Cholangitis acute [Unknown]

NARRATIVE: CASE EVENT DATE: 20150513
